FAERS Safety Report 5074446-5 (Version None)
Quarter: 2006Q3

REPORT INFORMATION
  Report Type: 
  Country: None (occurrence: None)
  Receive Date: 20060804
  Receipt Date: 20060728
  Transmission Date: 20061208
  Serious: Yes (Disabling)
  Sender: FDA-Public Use
  Company Number: OSCN-PR-0607S-0208

PATIENT
  Age: 49 Year
  Sex: Female

DRUGS (18)
  1. OMNISCAN [Suspect]
     Indication: ARTERIOVENOUS FISTULA OPERATION
     Dosage: 55 ML, SINGLE DOSE, I.A.
     Route: 013
     Dates: start: 20051220, end: 20051220
  2. OMNISCAN [Suspect]
     Indication: ARTERIOVENOUS FISTULA OPERATION
     Dosage: 55 ML, SINGLE DOSE, I.A.
     Route: 013
     Dates: start: 20051227, end: 20051227
  3. GLIPIZIDE [Concomitant]
  4. ZINC [Concomitant]
  5. MULTIVITAMIN [Concomitant]
  6. ZOLOFT [Concomitant]
  7. LISINOPRIL [Concomitant]
  8. SEVELAMER HYDROCHLORIDE (RENAGEL) [Concomitant]
  9. TRENTAL [Concomitant]
  10. NEXIUM [Concomitant]
  11. FELODIPINE [Concomitant]
  12. ACETYLSALICYLIC ACID (BABY ASPIRIN) [Concomitant]
  13. LEVODOPA (L-DOPA) [Concomitant]
  14. SIMVASTATIN [Concomitant]
  15. QUININE SULFATE [Concomitant]
  16. CALCIUM ACETATE [Concomitant]
  17. VICODIN [Concomitant]
  18. SALBUTAMOL (ALBUTEROL INHALER) [Concomitant]

REACTIONS (12)
  - ALOPECIA [None]
  - ECZEMA [None]
  - ERYTHEMA [None]
  - FLUID RETENTION [None]
  - HAEMODIALYSIS [None]
  - INDURATION [None]
  - JOINT STIFFNESS [None]
  - NEPHROGENIC FIBROSING DERMOPATHY [None]
  - OEDEMA PERIPHERAL [None]
  - PAIN IN EXTREMITY [None]
  - RASH [None]
  - SKIN FISSURES [None]
